FAERS Safety Report 9108247 (Version 1)
Quarter: 2013Q1

REPORT INFORMATION
  Report Type: Spontaneous
  Country: US (occurrence: US)
  Receive Date: 20130222
  Receipt Date: 20130222
  Transmission Date: 20140127
  Serious: No
  Sender: FDA-Public Use
  Company Number: US-009507513-1302USA007244

PATIENT
  Age: 82 Year
  Sex: Female

DRUGS (1)
  1. ZETIA [Suspect]
     Dosage: 10 MG TABLET SPLIT IN HALF, QD
     Route: 048
     Dates: start: 20130130

REACTIONS (2)
  - Muscle spasms [Unknown]
  - Wrong technique in drug usage process [Unknown]
